FAERS Safety Report 7081743-0 (Version None)
Quarter: 2010Q4

REPORT INFORMATION
  Report Type: 
  Country: None (occurrence: None)
  Receive Date: 20101103
  Receipt Date: 20101101
  Transmission Date: 20110411
  Serious: Yes (Other)
  Sender: FDA-Public Use
  Company Number: TN-ROXANE LABORATORIES, INC.-2010-RO-01438RO

PATIENT
  Age: 55 Year
  Sex: Male

DRUGS (2)
  1. AZATHIOPRINE [Suspect]
     Indication: CROHN'S DISEASE
     Dosage: 150 MG
  2. INSULIN [Suspect]
     Indication: DIABETES MELLITUS
     Dates: start: 20010101

REACTIONS (1)
  - ACUTE FEBRILE NEUTROPHILIC DERMATOSIS [None]
